FAERS Safety Report 18025119 (Version 3)
Quarter: 2020Q3

REPORT INFORMATION
  Report Type: Spontaneous
  Country: US (occurrence: US)
  Receive Date: 20200715
  Receipt Date: 20200817
  Transmission Date: 20201103
  Serious: No
  Sender: FDA-Public Use
  Company Number: US-PFIZER INC-2020268734

PATIENT
  Age: 32 Year
  Sex: Female

DRUGS (1)
  1. DEPO?PROVERA [Suspect]
     Active Substance: MEDROXYPROGESTERONE ACETATE
     Dosage: UNK
     Dates: start: 2009, end: 202001

REACTIONS (7)
  - Libido decreased [Unknown]
  - Gingival pain [Unknown]
  - Periodontal disease [Unknown]
  - Tooth fracture [Unknown]
  - Tooth loss [Unknown]
  - Weight increased [Unknown]
  - Headache [Unknown]
